FAERS Safety Report 7243839-X (Version None)
Quarter: 2011Q1

REPORT INFORMATION
  Report Type: 
  Country: None (occurrence: None)
  Receive Date: 20110118
  Receipt Date: 20110107
  Transmission Date: 20110831
  Serious: Yes (Other)
  Sender: FDA-Public Use
  Company Number: GB-ACCORD-007764

PATIENT
  Sex: Female

DRUGS (6)
  1. ACETYLSALICYLIC ACID (ACETYLSALICYLIC ACID) [Concomitant]
  2. LERCANDIPINE (LERCANDIPINE) [Concomitant]
  3. SIMVASTATIN [Suspect]
     Indication: HYPERCHOLESTEROLAEMIA
     Dosage: 40.00-MG-1.00PER-1.0DAYS /ORAL
     Route: 048
     Dates: start: 20000101, end: 20100101
  4. BENDROFLUMETHIAZIDE(BENDROFLUMETHIAZIDE) [Concomitant]
  5. CANDESARTAN CILEXETIL [Concomitant]
  6. EZETIMIBE [Concomitant]

REACTIONS (3)
  - RED BLOOD CELL SEDIMENTATION RATE INCREASED [None]
  - MYALGIA [None]
  - C-REACTIVE PROTEIN INCREASED [None]
